FAERS Safety Report 13290613 (Version 1)
Quarter: 2017Q1

REPORT INFORMATION
  Report Type: Spontaneous
  Country: CA (occurrence: CA)
  Receive Date: 20170302
  Receipt Date: 20170302
  Transmission Date: 20170428
  Serious: Yes (Disabling)
  Sender: FDA-Public Use
  Company Number: CA-TEVA-744499ACC

PATIENT
  Age: 82 Year
  Sex: Male

DRUGS (7)
  1. AMLODIPINE [Concomitant]
     Active Substance: AMLODIPINE BESYLATE
  2. ACT CANDESARTAN [Concomitant]
  3. ACEBUTOLOL [Concomitant]
     Active Substance: ACEBUTOLOL
  4. DOXAZOSIN [Concomitant]
     Active Substance: DOXAZOSIN\DOXAZOSIN MESYLATE
  5. FUROSEMIDE. [Concomitant]
     Active Substance: FUROSEMIDE
  6. CARBAMAZEPINE CR [Concomitant]
  7. TEVA-ROSUVASTATIN [Suspect]
     Active Substance: ROSUVASTATIN
     Indication: HYPERLIPIDAEMIA
     Dosage: 20 MILLIGRAM DAILY;
     Route: 048

REACTIONS (2)
  - Back pain [Unknown]
  - Pain in extremity [Unknown]
